FAERS Safety Report 25111108 (Version 1)
Quarter: 2025Q1

REPORT INFORMATION
  Report Type: Spontaneous
  Country: AU (occurrence: AU)
  Receive Date: 20250324
  Receipt Date: 20250324
  Transmission Date: 20250409
  Serious: Yes (Other)
  Sender: SANDOZ
  Company Number: AU-SZ09-PHHY2015AU084729

PATIENT
  Age: 70 Year
  Sex: Male

DRUGS (19)
  1. AMIODARONE HYDROCHLORIDE [Suspect]
     Active Substance: AMIODARONE HYDROCHLORIDE
     Indication: Product used for unknown indication
     Dosage: 200 MG, Q48H, ONE ALTERNATE DAYS
     Route: 065
  2. AMIODARONE HYDROCHLORIDE [Suspect]
     Active Substance: AMIODARONE HYDROCHLORIDE
     Route: 065
  3. ASPIRIN [Suspect]
     Active Substance: ASPIRIN
     Indication: Product used for unknown indication
     Dosage: 100 MG, QD, ONE EACH MORNING
     Route: 065
  4. CANDESARTAN CILEXETIL [Suspect]
     Active Substance: CANDESARTAN CILEXETIL
     Indication: Product used for unknown indication
     Dosage: 16 MG, QD, HALF A TABLET EACH DAY
     Route: 065
  5. CANDESARTAN CILEXETIL [Suspect]
     Active Substance: CANDESARTAN CILEXETIL
     Dosage: 4 MG, QD
     Route: 065
  6. CANDESARTAN CILEXETIL [Suspect]
     Active Substance: CANDESARTAN CILEXETIL
     Dosage: 8 MG, BID
     Route: 065
  7. CARVEDILOL [Suspect]
     Active Substance: CARVEDILOL
     Dosage: 1 DF, Q12H
     Route: 065
  8. CARVEDILOL [Suspect]
     Active Substance: CARVEDILOL
     Indication: Product used for unknown indication
     Dosage: 25 MG, BID
     Route: 065
  9. EZETIMIBE [Suspect]
     Active Substance: EZETIMIBE
     Indication: Product used for unknown indication
     Dosage: 10 MG, QD, ONE EACH MORNING
     Route: 065
  10. FUROSEMIDE [Suspect]
     Active Substance: FUROSEMIDE
     Indication: Product used for unknown indication
     Dosage: 40 MG, QD (EACH MORNING)
     Route: 065
  11. FUROSEMIDE [Suspect]
     Active Substance: FUROSEMIDE
     Route: 065
  12. FUROSEMIDE [Suspect]
     Active Substance: FUROSEMIDE
     Dosage: 80 MG, QD
     Route: 065
  13. GLICLAZIDE [Suspect]
     Active Substance: GLICLAZIDE
     Indication: Product used for unknown indication
     Dosage: 120 MG, QD, MR TABLETS 60MG; TWO EACH MORNING
     Route: 065
  14. METFORMIN HYDROCHLORIDE [Suspect]
     Active Substance: METFORMIN HYDROCHLORIDE
     Indication: Product used for unknown indication
     Dosage: 425 MG, BID
     Route: 065
  15. METFORMIN HYDROCHLORIDE [Suspect]
     Active Substance: METFORMIN HYDROCHLORIDE
     Dosage: 850 MG, Q12H, ONE TWICE A DAY
     Route: 065
  16. PROPYLTHIOURACIL [Suspect]
     Active Substance: PROPYLTHIOURACIL
     Indication: Product used for unknown indication
     Dosage: 50 MG, Q8H, ONE THREE TIMES A DAY
     Route: 065
  17. ROSUVASTATIN CALCIUM [Suspect]
     Active Substance: ROSUVASTATIN CALCIUM
     Indication: Product used for unknown indication
     Dosage: 20 MG, QD, ONE EACH MORNING
     Route: 065
  18. WARFARIN SODIUM [Suspect]
     Active Substance: WARFARIN SODIUM
     Indication: Product used for unknown indication
     Dosage: 1 MG, QD, ONE IN THE EVENING ACCORDING TO INR
     Route: 065
  19. WARFARIN SODIUM [Suspect]
     Active Substance: WARFARIN SODIUM
     Dosage: 5 MG, QD, ONE IN THE EVENING ACCORDING TO INR
     Route: 065

REACTIONS (6)
  - Hyperthyroidism [Unknown]
  - Hypotension [Recovering/Resolving]
  - Renal impairment [Recovering/Resolving]
  - Incorrect dose administered [Unknown]
  - Labelled drug-drug interaction issue [Unknown]
  - Product physical issue [Unknown]
